FAERS Safety Report 7680725-5 (Version None)
Quarter: 2011Q3

REPORT INFORMATION
  Report Type: 
  Country: None (occurrence: None)
  Receive Date: 20110812
  Receipt Date: 20110804
  Transmission Date: 20111222
  Serious: Yes (Hospitalization)
  Sender: FDA-Public Use
  Company Number: CA-BRISTOL-MYERS SQUIBB COMPANY-15922107

PATIENT
  Age: 75 Year
  Sex: Male

DRUGS (5)
  1. NOVORAPID [Suspect]
     Indication: TYPE 2 DIABETES MELLITUS
  2. BLINDED: SAXAGLIPTIN [Suspect]
     Indication: TYPE 2 DIABETES MELLITUS
     Dates: start: 20110503
  3. ASPIRIN [Concomitant]
  4. BLINDED: PLACEBO [Suspect]
     Indication: TYPE 2 DIABETES MELLITUS
     Dates: start: 20110503
  5. LEVEMIR [Suspect]
     Indication: TYPE 2 DIABETES MELLITUS

REACTIONS (3)
  - PERIPHERAL EMBOLISM [None]
  - RENAL FAILURE ACUTE [None]
  - DEHYDRATION [None]
